FAERS Safety Report 7316359-1 (Version None)
Quarter: 2011Q1

REPORT INFORMATION
  Report Type: 
  Country: None (occurrence: None)
  Receive Date: 20110225
  Receipt Date: 20110218
  Transmission Date: 20110831
  Serious: Yes (Hospitalization)
  Sender: FDA-Public Use
  Company Number: KR-B.I. PHARMACEUTICALS,INC./RIDGEFIELD-2011-BP-03458BP

PATIENT
  Sex: Male

DRUGS (14)
  1. BLIND (BI 201335) [Suspect]
     Indication: HEPATITIS C
     Route: 048
     Dates: start: 20090421, end: 20091005
  2. PEGINTERFERON ALFA-ZA [Suspect]
     Indication: HEPATITIS C
     Route: 058
     Dates: start: 20090421, end: 20091201
  3. RIBAVIRIN [Suspect]
     Dosage: 0 MG
     Route: 048
     Dates: start: 20091205, end: 20091207
  4. RIBAVIRIN [Suspect]
     Dosage: 600 MG
     Route: 048
     Dates: start: 20091208, end: 20100322
  5. TERBEN SR [Suspect]
     Indication: ANGINA PECTORIS
     Dosage: 180 MG
     Route: 048
     Dates: start: 20091230
  6. SPIRIVA [Suspect]
     Indication: BRONCHIECTASIS
     Route: 055
     Dates: start: 20101102
  7. SPIRIVA [Concomitant]
     Dosage: 18 MCG
     Route: 055
  8. RIBAVIRIN [Suspect]
     Dosage: 600 MG
     Route: 048
     Dates: start: 20090701, end: 20090810
  9. ASPIRIN [Suspect]
     Indication: ANGINA PECTORIS
     Dosage: 100 MG
     Route: 048
     Dates: start: 20091204
  10. RIBAVIRIN [Suspect]
     Dosage: 600 MG
     Route: 048
     Dates: start: 20090811, end: 20091204
  11. CRESTOR [Suspect]
     Indication: ANGINA PECTORIS
     Dosage: 10 MG
     Route: 048
     Dates: start: 20091230
  12. BLIND (BI 201335) [Suspect]
     Route: 048
     Dates: start: 20090421, end: 20091005
  13. RIBAVIRIN [Suspect]
     Indication: HEPATITIS C
     Dosage: 1000 MG
     Route: 048
     Dates: start: 20090421, end: 20090715
  14. RIBAVIRIN [Suspect]
     Dosage: 600 MG
     Route: 048
     Dates: start: 20090716, end: 20090721

REACTIONS (5)
  - BRONCHIECTASIS [None]
  - UPPER LIMB FRACTURE [None]
  - HELICOBACTER INFECTION [None]
  - GASTRITIS [None]
  - ANGINA PECTORIS [None]
